FAERS Safety Report 7969880-7 (Version None)
Quarter: 2011Q4

REPORT INFORMATION
  Report Type: 
  Country: None (occurrence: None)
  Receive Date: 20111212
  Receipt Date: 20100203
  Transmission Date: 20120403
  Serious: No
  Sender: FDA-Public Use
  Company Number: US-BAYER-200917828NA

PATIENT

DRUGS (1)
  1. PRIMOVIST [Suspect]
     Indication: PRODUCT USED FOR UNKNOWN INDICATION
     Dates: start: 20090303, end: 20090303

REACTIONS (1)
  - ADVERSE EVENT [None]
